FAERS Safety Report 5892376-3 (Version None)
Quarter: 2008Q3

REPORT INFORMATION
  Report Type: 
  Country: None (occurrence: None)
  Receive Date: 20080918
  Receipt Date: 20080918
  Transmission Date: 20090109
  Serious: Yes (Other)
  Sender: FDA-Public Use
  Company Number: None

PATIENT
  Age: 40 Year
  Sex: Male
  Weight: 82.1011 kg

DRUGS (1)
  1. CYMBALTA [Suspect]
     Indication: AFFECTIVE DISORDER
     Dosage: 60MG 1 PER DAY PO
     Route: 048
     Dates: start: 20000101, end: 20080901

REACTIONS (2)
  - PARAESTHESIA [None]
  - WITHDRAWAL SYNDROME [None]
